FAERS Safety Report 15628571 (Version 1)
Quarter: 2018Q4

REPORT INFORMATION
  Report Type: Spontaneous
  Country: GB (occurrence: GB)
  Receive Date: 20181116
  Receipt Date: 20181116
  Transmission Date: 20190205
  Serious: Yes (Other)
  Sender: FDA-Public Use
  Company Number: GB-LPDUSPRD-20182170

PATIENT
  Age: 36 Year
  Sex: Female

DRUGS (3)
  1. FERROUS FUMARATE [Concomitant]
     Active Substance: FERROUS FUMARATE
     Dosage: UNKNOWN
     Route: 065
  2. FERINJECT [Suspect]
     Active Substance: FERRIC CARBOXYMALTOSE
     Dosage: 1000 MG
     Route: 042
     Dates: start: 20181016, end: 20181016
  3. THYROXINE [Concomitant]
     Active Substance: LEVOTHYROXINE
     Dosage: UNKNOWN
     Route: 065

REACTIONS (8)
  - Abdominal pain [Unknown]
  - Loss of consciousness [Unknown]
  - Headache [Unknown]
  - Rash generalised [Unknown]
  - Flushing [Unknown]
  - Discomfort [Unknown]
  - Diarrhoea [Unknown]
  - Vomiting [Unknown]

NARRATIVE: CASE EVENT DATE: 20181016
